FAERS Safety Report 4895123-7 (Version None)
Quarter: 2006Q1

REPORT INFORMATION
  Report Type: 
  Country: None (occurrence: None)
  Receive Date: 20060126
  Receipt Date: 20060126
  Transmission Date: 20060701
  Serious: Yes (Hospitalization, Other)
  Sender: FDA-Public Use
  Company Number: None

PATIENT
  Sex: Male
  Weight: 84.2 kg

DRUGS (2)
  1. DOXORUBICIN HCL [Suspect]
     Indication: PRECURSOR B-LYMPHOBLASTIC LYMPHOMA
     Dosage: SEE IMAGE
     Route: 042
     Dates: start: 20051108, end: 20051122
  2. DEXAMETHASONE [Suspect]
     Dosage: SEE IMAGE
     Route: 048
     Dates: start: 20051108, end: 20051128

REACTIONS (18)
  - ABDOMINAL PAIN [None]
  - ANOREXIA [None]
  - ASCITES [None]
  - BACTERIA BLOOD IDENTIFIED [None]
  - CAECITIS [None]
  - CONDITION AGGRAVATED [None]
  - HALLUCINATION [None]
  - HEPATIC CIRRHOSIS [None]
  - HEPATIC STEATOSIS [None]
  - HYPERAMMONAEMIA [None]
  - HYPERMETHIONINAEMIA [None]
  - HYPOXIA [None]
  - KLEBSIELLA INFECTION [None]
  - LIVER ABSCESS [None]
  - NAUSEA [None]
  - NEUTROPENIA [None]
  - PYREXIA [None]
  - RESPIRATORY DISTRESS [None]
